FAERS Safety Report 17361566 (Version 8)
Quarter: 2021Q1

REPORT INFORMATION
  Report Type: Spontaneous
  Country: US (occurrence: US)
  Receive Date: 20200203
  Receipt Date: 20210107
  Transmission Date: 20210419
  Serious: No
  Sender: FDA-Public Use
  Company Number: US-PFIZER INC-2020043495

PATIENT
  Age: 83 Year
  Sex: Female
  Weight: 52 kg

DRUGS (20)
  1. LYRICA [Suspect]
     Active Substance: PREGABALIN
     Indication: POST HERPETIC NEURALGIA
     Dosage: 50 MG, THRICE DAILY (TID)
     Dates: start: 20190731, end: 2019
  2. BUSPIRONE [Concomitant]
     Active Substance: BUSPIRONE HYDROCHLORIDE
     Indication: ANXIETY
     Dosage: 5 MG, 2X/DAY
     Dates: start: 20200302
  3. SYNTHROID [Concomitant]
     Active Substance: LEVOTHYROXINE SODIUM
     Dosage: 50 MG, DAILY
     Dates: start: 20190228
  4. ALDACTONE [Concomitant]
     Active Substance: SPIRONOLACTONE
     Dosage: UNK
     Dates: start: 2019
  5. PANTOPRAZOLE [Concomitant]
     Active Substance: PANTOPRAZOLE
     Indication: GASTRIC DISORDER
     Dosage: 40 MG, 1X/DAY
     Dates: start: 1980
  6. WARFARIN [Concomitant]
     Active Substance: WARFARIN
     Indication: ANTICOAGULANT THERAPY
     Dosage: 1 MG, 4 DAYS (ONCE A DAY 1?2MG)
     Dates: start: 1980
  7. WARFARIN [Concomitant]
     Active Substance: WARFARIN
     Dosage: 2 MG, 3 DAYS
     Dates: start: 1993
  8. LYRICA [Suspect]
     Active Substance: PREGABALIN
     Dosage: 100 MG, BID
     Dates: start: 20200420
  9. LYRICA [Suspect]
     Active Substance: PREGABALIN
     Dosage: 450 MG, DAILY (ONE 50 MG TID AND ONE 150 MG BID)
     Route: 048
  10. LYRICA [Suspect]
     Active Substance: PREGABALIN
     Indication: PAIN
     Dosage: 100 MG, TWICE A DAY (2 50MG BID)
     Route: 048
     Dates: start: 20190522, end: 2019
  11. TORASEMIDA [Concomitant]
     Active Substance: TORSEMIDE
     Dosage: 5 MG, 1X/DAY
     Dates: start: 20190731
  12. TYLENOL EXTRA STRENGTH [Concomitant]
     Active Substance: ACETAMINOPHEN
     Indication: PAIN
     Dosage: 2 DF, 3X/DAY
  13. MELATONIN [Concomitant]
     Active Substance: MELATONIN
     Indication: SLEEP DISORDER
     Dosage: 10 MG, 1X/DAY (AT BEDTIME)
     Dates: start: 2019
  14. LYRICA [Suspect]
     Active Substance: PREGABALIN
     Dosage: 100 MG, BID
     Dates: start: 20191101
  15. TORASEMIDA [Concomitant]
     Active Substance: TORSEMIDE
     Indication: DIURETIC THERAPY
     Dosage: 5 MG, 1X/DAY
     Dates: start: 1980
  16. PANTOPRAZOLE [Concomitant]
     Active Substance: PANTOPRAZOLE
     Dosage: UNK
     Dates: start: 2019
  17. SYNTHROID [Concomitant]
     Active Substance: LEVOTHYROXINE SODIUM
     Indication: THYROID STIMULATING HORMONE DEFICIENCY
     Dosage: 50 UG, 1X/DAY
     Dates: start: 1972
  18. BUSPIRONE [Concomitant]
     Active Substance: BUSPIRONE HYDROCHLORIDE
     Indication: DEPRESSION
  19. ALDACTONE [Concomitant]
     Active Substance: SPIRONOLACTONE
     Dosage: 25 MG, 1X/DAY
     Dates: start: 1980
  20. METOPROLOL. [Concomitant]
     Active Substance: METOPROLOL
     Dosage: 50 MG

REACTIONS (4)
  - Arthropathy [Recovering/Resolving]
  - Fall [Unknown]
  - Gait disturbance [Unknown]
  - Drug ineffective [Recovering/Resolving]

NARRATIVE: CASE EVENT DATE: 20190731
